FAERS Safety Report 7369075-4 (Version None)
Quarter: 2011Q1

REPORT INFORMATION
  Report Type: 
  Country: None (occurrence: None)
  Receive Date: 20110323
  Receipt Date: 20110316
  Transmission Date: 20110831
  Serious: Yes (Life-Threatening, Hospitalization, Other)
  Sender: FDA-Public Use
  Company Number: JP-ROCHE-433245

PATIENT
  Sex: Female
  Weight: 31.3 kg

DRUGS (44)
  1. TOCILIZUMAB [Suspect]
     Route: 041
     Dates: start: 20061215, end: 20061215
  2. TOCILIZUMAB [Suspect]
     Route: 041
     Dates: start: 20070529, end: 20070529
  3. TOCILIZUMAB [Suspect]
     Route: 041
     Dates: start: 20080108, end: 20080108
  4. TOCILIZUMAB [Suspect]
     Route: 041
     Dates: start: 20080122, end: 20080527
  5. TOCILIZUMAB [Suspect]
     Route: 041
     Dates: start: 20080805, end: 20080805
  6. METHOTREXATE [Suspect]
     Indication: CASTLEMAN'S DISEASE
     Route: 048
     Dates: start: 20050501, end: 20060514
  7. METHOTREXATE [Suspect]
     Route: 048
     Dates: start: 20060515, end: 20061205
  8. TOCILIZUMAB [Suspect]
     Route: 041
     Dates: start: 20080728, end: 20080728
  9. PREDONINE [Suspect]
     Indication: CASTLEMAN'S DISEASE
     Route: 048
     Dates: start: 20050501, end: 20080721
  10. TOCILIZUMAB [Suspect]
     Route: 041
     Dates: start: 20051017, end: 20051226
  11. TOCILIZUMAB [Suspect]
     Route: 041
     Dates: start: 20060714, end: 20060714
  12. TOCILIZUMAB [Suspect]
     Route: 041
     Dates: start: 20061226, end: 20070109
  13. TOCILIZUMAB [Suspect]
     Route: 041
     Dates: start: 20070911, end: 20071218
  14. DEPAKENE [Suspect]
     Indication: CONVULSION
     Route: 048
     Dates: start: 20051226, end: 20060107
  15. DEPAKENE [Suspect]
     Route: 048
     Dates: start: 20060108, end: 20060424
  16. NEORAL [Concomitant]
     Route: 048
     Dates: start: 20050501, end: 20060221
  17. TOCILIZUMAB [Suspect]
     Route: 041
     Dates: start: 20060124, end: 20060307
  18. TOCILIZUMAB [Suspect]
     Route: 041
     Dates: start: 20060509, end: 20060606
  19. TOCILIZUMAB [Suspect]
     Route: 041
     Dates: start: 20060829, end: 20060912
  20. TOCILIZUMAB [Suspect]
     Route: 041
     Dates: start: 20070130, end: 20070424
  21. TEGRETOL [Suspect]
     Indication: CONVULSION
     Dosage: ORAL FORMULATION NOT OTHERWISE SPECIFIED
     Route: 048
     Dates: start: 20051226, end: 20060108
  22. TOCILIZUMAB [Suspect]
     Indication: CASTLEMAN'S DISEASE
     Route: 041
     Dates: start: 20050808, end: 20050808
  23. TOCILIZUMAB [Suspect]
     Route: 041
     Dates: start: 20060113, end: 20060113
  24. TOCILIZUMAB [Suspect]
     Route: 041
     Dates: start: 20080610, end: 20080708
  25. DEPAKENE [Suspect]
     Route: 048
     Dates: start: 20060425, end: 20080901
  26. DEPAKENE [Suspect]
     Dosage: DOSAGE IS UNCERTAIN
     Route: 048
     Dates: start: 20080901
  27. SOLU-MEDROL [Suspect]
     Indication: DRUG ERUPTION
     Dosage: ROUTE: INTRAVENOUS NOT OTHERWISE SPECIFIED
     Route: 042
     Dates: start: 20060108, end: 20060110
  28. PREDONINE [Suspect]
     Route: 048
     Dates: start: 20080725
  29. BONALON [Concomitant]
     Dosage: DRUG REPORTED AS ^BONALON (ALENDRONATE SODIUM HYDRATE)^
     Route: 048
     Dates: start: 20050501
  30. GAMOFA [Concomitant]
     Route: 048
     Dates: start: 20050501, end: 20060523
  31. DIAMOX [Concomitant]
     Route: 048
     Dates: start: 20080708
  32. TOCILIZUMAB [Suspect]
     Route: 041
     Dates: start: 20050818, end: 20050829
  33. TOCILIZUMAB [Suspect]
     Route: 041
     Dates: start: 20060425, end: 20060425
  34. TOCILIZUMAB [Suspect]
     Route: 041
     Dates: start: 20060627, end: 20060627
  35. TOCILIZUMAB [Suspect]
     Route: 041
     Dates: start: 20080101, end: 20101222
  36. PREDONINE [Suspect]
     Route: 048
     Dates: start: 20080722, end: 20080724
  37. TOCILIZUMAB [Suspect]
     Route: 041
     Dates: start: 20060324, end: 20060404
  38. TOCILIZUMAB [Suspect]
     Route: 041
     Dates: start: 20060725, end: 20060822
  39. TOCILIZUMAB [Suspect]
     Route: 041
     Dates: start: 20060926, end: 20061205
  40. PREDONINE [Suspect]
     Route: 048
  41. LOXONIN [Concomitant]
     Dosage: DRUG REPORTED AS ^LOXONIN (LOXOPROFEN SODIUM)^, FORM: ORAL FORMULATION NOT OTHERWISE SPECIFIED
     Route: 048
     Dates: start: 20050501
  42. TOCILIZUMAB [Suspect]
     Route: 041
     Dates: start: 20050909, end: 20051005
  43. TOCILIZUMAB [Suspect]
     Route: 041
     Dates: start: 20070619, end: 20070731
  44. TOCILIZUMAB [Suspect]
     Route: 041
     Dates: start: 20070828, end: 20070828

REACTIONS (13)
  - PYREXIA [None]
  - UPPER RESPIRATORY TRACT INFLAMMATION [None]
  - AMNESIA [None]
  - CONVULSION [None]
  - PERICARDIAL EFFUSION [None]
  - RASH [None]
  - WHITE BLOOD CELL COUNT INCREASED [None]
  - ENTEROCOLITIS [None]
  - DRUG ERUPTION [None]
  - HEPATIC FUNCTION ABNORMAL [None]
  - RENAL FAILURE [None]
  - SEPSIS [None]
  - ARTHRALGIA [None]
